FAERS Safety Report 5268643-3 (Version None)
Quarter: 2007Q1

REPORT INFORMATION
  Report Type: 
  Country: None (occurrence: None)
  Receive Date: 20070319
  Receipt Date: 20070308
  Transmission Date: 20070707
  Serious: Yes (Hospitalization, Disabling)
  Sender: FDA-Public Use
  Company Number: KR-BRISTOL-MYERS SQUIBB COMPANY-13717368

PATIENT
  Age: 27 Year
  Sex: Male

DRUGS (7)
  1. ARIPIPRAZOLE [Suspect]
     Dosage: 10MG 27SEP05-17OCT05, 20MG 18OCT05-31OCT05, 30MG 1-NOV05- FEB07, 25MG FEB07- CONT
     Route: 048
     Dates: start: 20050927
  2. OLOPATADINE HCL [Concomitant]
     Indication: RHINITIS ALLERGIC
     Route: 048
     Dates: start: 20050608, end: 20061120
  3. RISPERIDONE [Concomitant]
     Dosage: 4MG 4/3/05-4/3/05, 5MG 5/3-6/3, 6MG 7/3-8/3, 8MG 9/3-10/3, 7MG 11/3-7/4, 6MG, 5MG, 4MG, 2MG, 4MG,2MG
     Dates: start: 20050304, end: 20051030
  4. PERPHENAZINE [Concomitant]
     Dosage: 4MG 22FEB06-21MAR06, 8MG 22MAR06-18APR06, 4MG 19APR06-10JUL06
     Dates: start: 20060222
  5. MOMETASONE FUROATE [Concomitant]
     Indication: RHINITIS ALLERGIC
     Dates: start: 20050608, end: 20050809
  6. PROPRANOLOL [Concomitant]
  7. MAGNESIUM OXIDE [Concomitant]

REACTIONS (1)
  - OSTEONECROSIS [None]
